FAERS Safety Report 20610065 (Version 1)
Quarter: 2022Q1

REPORT INFORMATION
  Report Type: Spontaneous
  Country: US (occurrence: US)
  Receive Date: 20220318
  Receipt Date: 20220318
  Transmission Date: 20220424
  Serious: Yes (Death, Other)
  Sender: FDA-Public Use
  Company Number: US-ALVOGEN-2022-ALVOGEN-118606

PATIENT
  Age: 12 Year
  Sex: Female

DRUGS (7)
  1. LEVOTHYROXINE [Suspect]
     Active Substance: LEVOTHYROXINE
     Indication: Suicide attempt
  2. NAPROXEN [Suspect]
     Active Substance: NAPROXEN
     Indication: Suicide attempt
  3. ACETAMINOPHEN\CODEINE PHOSPHATE [Suspect]
     Active Substance: ACETAMINOPHEN\CODEINE PHOSPHATE
     Indication: Suicide attempt
  4. TAMSULOSIN [Suspect]
     Active Substance: TAMSULOSIN
     Indication: Suicide attempt
  5. ONDANSETRON [Suspect]
     Active Substance: ONDANSETRON
     Indication: Suicide attempt
  6. NABUMETONE [Suspect]
     Active Substance: NABUMETONE
     Indication: Suicide attempt
  7. IBUPROFEN [Suspect]
     Active Substance: IBUPROFEN
     Indication: Suicide attempt

REACTIONS (1)
  - Completed suicide [Fatal]
